FAERS Safety Report 12536473 (Version 1)
Quarter: 2016Q3

REPORT INFORMATION
  Report Type: Spontaneous
  Country: US (occurrence: US)
  Receive Date: 20160707
  Receipt Date: 20160707
  Transmission Date: 20161109
  Serious: Yes (Hospitalization)
  Sender: FDA-Public Use
  Company Number: US-SA-2016SA122258

PATIENT
  Age: 46 Year
  Sex: Female

DRUGS (16)
  1. AMANTADINE [Concomitant]
     Active Substance: AMANTADINE
  2. ESCITALOPRAM [Concomitant]
     Active Substance: ESCITALOPRAM OXALATE
  3. AUBAGIO [Suspect]
     Active Substance: TERIFLUNOMIDE
     Indication: MULTIPLE SCLEROSIS
     Route: 048
     Dates: start: 201604
  4. SUMATRIPTAN. [Concomitant]
     Active Substance: SUMATRIPTAN
  5. BACLOFEN. [Concomitant]
     Active Substance: BACLOFEN
  6. TOPIRAMATE. [Concomitant]
     Active Substance: TOPIRAMATE
  7. LEVOFLOXACIN. [Concomitant]
     Active Substance: LEVOFLOXACIN
  8. MONTELUKAST [Concomitant]
     Active Substance: MONTELUKAST SODIUM
  9. ONDANSETRON [Concomitant]
     Active Substance: ONDANSETRON
     Dosage: ODT
  10. TECFIDERA [Concomitant]
     Active Substance: DIMETHYL FUMARATE
  11. TIZANIDINE. [Concomitant]
     Active Substance: TIZANIDINE
  12. PROAIR HFA [Concomitant]
     Active Substance: ALBUTEROL SULFATE
     Dosage: AER
  13. ACETAMINOPHEN\HYDROCODONE BITARTRATE [Concomitant]
     Active Substance: ACETAMINOPHEN\HYDROCODONE BITARTRATE
     Dosage: SOL; 7.5-500
  14. PROMETHAZINE [Concomitant]
     Active Substance: PROMETHAZINE\PROMETHAZINE HYDROCHLORIDE
  15. GABAPENTIN. [Concomitant]
     Active Substance: GABAPENTIN
  16. LEVETIRACETAM. [Concomitant]
     Active Substance: LEVETIRACETAM

REACTIONS (1)
  - Back disorder [Not Recovered/Not Resolved]
